FAERS Safety Report 9338582 (Version 1)
Quarter: 2013Q2

REPORT INFORMATION
  Report Type: Spontaneous
  Country: US (occurrence: US)
  Receive Date: 20130610
  Receipt Date: 20130610
  Transmission Date: 20140414
  Serious: Yes (Other)
  Sender: FDA-Public Use
  Company Number: US-AMGEN-USASP2013039832

PATIENT
  Age: 83 Year
  Sex: Female

DRUGS (5)
  1. PROLIA [Suspect]
     Indication: OSTEOPOROSIS POSTMENOPAUSAL
     Dosage: UNK
     Dates: start: 20121220
  2. POTASSIUM [Concomitant]
  3. MULTIVITAMIN                       /00097801/ [Concomitant]
  4. CALCIUM [Concomitant]
  5. DIURETIC                           /00022001/ [Concomitant]

REACTIONS (2)
  - Blood pressure fluctuation [Recovered/Resolved]
  - Atrial fibrillation [Unknown]
